FAERS Safety Report 8590628-X (Version None)
Quarter: 2012Q3

REPORT INFORMATION
  Report Type: 
  Country: None (occurrence: None)
  Receive Date: 20120731
  Receipt Date: 20120720
  Transmission Date: 20120928
  Serious: Yes (Other)
  Sender: FDA-Public Use
  Company Number: AUR-APL-2012-03148

PATIENT
  Age: 52 Year
  Sex: Male

DRUGS (4)
  1. OXYCONTIN [Concomitant]
  2. GABAPENTIN [Suspect]
     Indication: PAIN
     Dosage: 300, ORAL; 600/300/600, ORAL; 300, ORAL
     Route: 048
     Dates: start: 20110809
  3. GABAPENTIN [Suspect]
     Indication: PAIN
     Dosage: 300, ORAL; 600/300/600, ORAL; 300, ORAL
     Route: 048
     Dates: start: 20110725
  4. CITALOPRAM HYDROBROMIDE [Concomitant]

REACTIONS (4)
  - DEPRESSION [None]
  - SEDATION [None]
  - SUICIDAL IDEATION [None]
  - ANXIETY [None]
